FAERS Safety Report 11922258 (Version 3)
Quarter: 2016Q2

REPORT INFORMATION
  Report Type: Spontaneous
  Country: US (occurrence: US)
  Receive Date: 20160115
  Receipt Date: 20160523
  Transmission Date: 20160815
  Serious: Yes (Hospitalization)
  Sender: FDA-Public Use
  Company Number: US-LUNDBECK-DKLU2008744

PATIENT
  Age: 10 Year
  Sex: Male

DRUGS (9)
  1. ONFI [Suspect]
     Active Substance: CLOBAZAM
     Indication: EPILEPSY
     Route: 065
     Dates: start: 201307, end: 201511
  2. VIMPAT [Concomitant]
     Active Substance: LACOSAMIDE
     Indication: PRODUCT USED FOR UNKNOWN INDICATION
     Route: 065
  3. BANZEL [Suspect]
     Active Substance: RUFINAMIDE
     Indication: EPILEPSY
     Route: 065
     Dates: start: 20150723
  4. ONFI [Suspect]
     Active Substance: CLOBAZAM
     Indication: LENNOX-GASTAUT SYNDROME
     Route: 065
     Dates: start: 201307, end: 201511
  5. KEPPRA [Concomitant]
     Active Substance: LEVETIRACETAM
     Indication: PRODUCT USED FOR UNKNOWN INDICATION
     Route: 065
  6. VALPROIC ACID. [Concomitant]
     Active Substance: VALPROIC ACID
     Indication: PRODUCT USED FOR UNKNOWN INDICATION
     Route: 065
  7. CLONAZEPAM. [Concomitant]
     Active Substance: CLONAZEPAM
     Indication: PRODUCT USED FOR UNKNOWN INDICATION
     Route: 065
  8. LYRICA [Concomitant]
     Active Substance: PREGABALIN
     Indication: PRODUCT USED FOR UNKNOWN INDICATION
     Route: 065
  9. DIAZEPAM. [Concomitant]
     Active Substance: DIAZEPAM
     Indication: PRODUCT USED FOR UNKNOWN INDICATION
     Route: 065

REACTIONS (2)
  - Respiratory failure [Unknown]
  - Stevens-Johnson syndrome [Recovered/Resolved]

NARRATIVE: CASE EVENT DATE: 201511
